FAERS Safety Report 9187221 (Version 1)
Quarter: 2013Q1

REPORT INFORMATION
  Report Type: Spontaneous
  Country: MX (occurrence: MX)
  Receive Date: 20130325
  Receipt Date: 20130325
  Transmission Date: 20140127
  Serious: Yes (Death)
  Sender: FDA-Public Use
  Company Number: PHHY2013MX028464

PATIENT
  Age: 88 Year
  Sex: Male

DRUGS (1)
  1. STALEVO [Suspect]
     Indication: PARKINSON^S DISEASE
     Dosage: 3 DF ((200MG / 50MG / 12.5MG)) DAILY
     Route: 048

REACTIONS (1)
  - Death [Fatal]
